FAERS Safety Report 4464655-8 (Version None)
Quarter: 2004Q3

REPORT INFORMATION
  Report Type: 
  Country: None (occurrence: None)
  Receive Date: 20040929
  Receipt Date: 20040914
  Transmission Date: 20050211
  Serious: Yes (Other)
  Sender: FDA-Public Use
  Company Number: 2004-0007486

PATIENT
  Age: 45 Year
  Sex: Male

DRUGS (5)
  1. TENOFOVIR DISOPROXIL FUMARATE (TENOFOVIR DISOPROXIL FUMARATE) [Suspect]
     Indication: HIV INFECTION
     Dosage: SEE IMAGE
     Route: 048
     Dates: start: 20020521, end: 20040322
  2. TENOFOVIR DISOPROXIL FUMARATE (TENOFOVIR DISOPROXIL FUMARATE) [Suspect]
     Indication: HIV INFECTION
     Dosage: SEE IMAGE
     Route: 048
     Dates: start: 20040420
  3. DIDANOSINE [Suspect]
     Indication: HIV INFECTION
     Dosage: ORAL
     Route: 048
     Dates: start: 20020521, end: 20040301
  4. KALETRA [Suspect]
     Indication: HIV INFECTION
     Dosage: ORAL
     Route: 048
     Dates: start: 20040420
  5. ABACAVIR SULFATE (ABACAVIR SULFATE) [Suspect]
     Indication: HIV INFECTION
     Dates: start: 20040420

REACTIONS (4)
  - HYPERTRIGLYCERIDAEMIA [None]
  - NEUROPATHY PERIPHERAL [None]
  - TUBERCULOSIS [None]
  - TUBULOINTERSTITIAL NEPHRITIS [None]
